FAERS Safety Report 7969319-1 (Version None)
Quarter: 2011Q4

REPORT INFORMATION
  Report Type: 
  Country: None (occurrence: None)
  Receive Date: 20111209
  Receipt Date: 20111130
  Transmission Date: 20120403
  Serious: Yes (Other)
  Sender: FDA-Public Use
  Company Number: US-ASTRAZENECA-2011SE73097

PATIENT
  Sex: Female

DRUGS (2)
  1. VALIUM [Concomitant]
  2. SEROQUEL [Suspect]
     Route: 048

REACTIONS (3)
  - HERPES ZOSTER [None]
  - LYME DISEASE [None]
  - MENINGITIS ASEPTIC [None]
